FAERS Safety Report 15295427 (Version 1)
Quarter: 2018Q3

REPORT INFORMATION
  Report Type: Spontaneous
  Country: IT (occurrence: IT)
  Receive Date: 20180820
  Receipt Date: 20180820
  Transmission Date: 20181010
  Serious: Yes (Other)
  Sender: FDA-Public Use
  Company Number: PHHY2018IT073233

PATIENT
  Age: 45 Year
  Sex: Male

DRUGS (5)
  1. CEFTOBIPROLE MEDOCARIL SODIUM [Suspect]
     Active Substance: CEFTOBIPROLE MEDOCARIL
     Indication: PNEUMONIA STAPHYLOCOCCAL
     Dosage: 1500 MG, QD
     Route: 065
  2. AZITHROMYCINE [Concomitant]
     Active Substance: AZITHROMYCIN DIHYDRATE
     Indication: PRODUCT USED FOR UNKNOWN INDICATION
     Dosage: 1000 MG, QD
     Route: 065
  3. PIPERACILLIN/TAZOBACTAM [Concomitant]
     Active Substance: PIPERACILLIN SODIUM\TAZOBACTAM SODIUM
     Indication: PRODUCT USED FOR UNKNOWN INDICATION
     Dosage: 13.5 G, QD
     Route: 041
  4. LINEZOLID. [Suspect]
     Active Substance: LINEZOLID
     Indication: PNEUMONIA STAPHYLOCOCCAL
     Dosage: UNK
     Route: 065
  5. LINEZOLID. [Suspect]
     Active Substance: LINEZOLID
     Indication: PNEUMONIA
     Dosage: 1200 MG, QD
     Route: 065

REACTIONS (3)
  - Pneumonia necrotising [Unknown]
  - Alveolar lung disease [Unknown]
  - Gangrene [Unknown]
